FAERS Safety Report 4990727-5 (Version None)
Quarter: 2006Q2

REPORT INFORMATION
  Report Type: 
  Country: None (occurrence: None)
  Receive Date: 20060427
  Receipt Date: 20060421
  Transmission Date: 20061013
  Serious: Yes (Hospitalization)
  Sender: FDA-Public Use
  Company Number: HQWYE806812APR06

PATIENT
  Age: 37 Year
  Sex: Female

DRUGS (7)
  1. RAPAMUNE [Suspect]
     Indication: PROPHYLAXIS AGAINST TRANSPLANT REJECTION
     Dosage: 5 MG 1X PER 1 DAY
     Route: 048
     Dates: start: 20060228, end: 20060403
  2. LASIX [Concomitant]
  3. PROGRAF [Concomitant]
  4. PREDNISONE TAB [Concomitant]
  5. ASPIRIN [Concomitant]
  6. LIPITOR [Concomitant]
  7. LOPRESSOR [Concomitant]

REACTIONS (11)
  - ANURIA [None]
  - DRUG INEFFECTIVE [None]
  - HAEMOGLOBIN DECREASED [None]
  - HAEMORRHAGE [None]
  - HYPOTENSION [None]
  - OEDEMA PERIPHERAL [None]
  - PERINEPHRIC COLLECTION [None]
  - RENAL FAILURE ACUTE [None]
  - RENAL TUBULAR NECROSIS [None]
  - VEIN DISORDER [None]
  - VENOUS INJURY [None]
